FAERS Safety Report 21748401 (Version 1)
Quarter: 2022Q4

REPORT INFORMATION
  Report Type: Spontaneous
  Country: US (occurrence: US)
  Receive Date: 20221219
  Receipt Date: 20221219
  Transmission Date: 20230112
  Serious: No
  Sender: FDA-Public Use
  Company Number: US-PFIZER INC-PV202200091038

PATIENT
  Age: 82 Year
  Sex: Female

DRUGS (2)
  1. AROMASIN [Suspect]
     Active Substance: EXEMESTANE
     Dosage: 25 MG, CYCLIC (DAILY FOR 21 CONSECUTIVE DAYS THEN STOP FOR 7 DAYS)
     Route: 048
  2. AROMASIN [Suspect]
     Active Substance: EXEMESTANE
     Dosage: 25 MG

REACTIONS (9)
  - Neoplasm recurrence [Unknown]
  - Neoplasm progression [Unknown]
  - Pain [Unknown]
  - Nail bed inflammation [Unknown]
  - Onychomadesis [Unknown]
  - Abdominal pain upper [Unknown]
  - Feeling cold [Unknown]
  - Off label use [Unknown]
  - Product use issue [Unknown]
